FAERS Safety Report 16094767 (Version 2)
Quarter: 2019Q2

REPORT INFORMATION
  Report Type: Spontaneous
  Country: PT (occurrence: PT)
  Receive Date: 20190320
  Receipt Date: 20190403
  Transmission Date: 20190711
  Serious: Yes (Other)
  Sender: FDA-Public Use
  Company Number: PT-ROCHE-2284360

PATIENT
  Sex: Male

DRUGS (7)
  1. RIBAVIRIN. [Suspect]
     Active Substance: RIBAVIRIN
     Indication: CHRONIC HEPATITIS C
     Dosage: MOST RECENT DOSE: 06/NOV/2015
     Route: 065
     Dates: start: 20150523
  2. NEBILET [Concomitant]
     Active Substance: NEBIVOLOL
     Route: 065
  3. HARVONI [Suspect]
     Active Substance: LEDIPASVIR\SOFOSBUVIR
     Indication: CHRONIC HEPATITIS C
     Dosage: MOST RECENT DOSE: 06/NOV/2015
     Route: 065
     Dates: start: 20150523
  4. HYDROCHLOROTHIAZIDE/LOSARTAN [Concomitant]
     Active Substance: HYDROCHLOROTHIAZIDE\LOSARTAN
     Route: 065
  5. LEPICORTINOLO [Concomitant]
     Active Substance: PREDNISOLONE
     Route: 065
  6. ALPRAZOLAM. [Concomitant]
     Active Substance: ALPRAZOLAM
     Route: 065
  7. HIDANTINA [Concomitant]
     Active Substance: PHENYTOIN SODIUM
     Route: 065

REACTIONS (2)
  - Drug ineffective [Unknown]
  - Hepatitis C [Not Recovered/Not Resolved]
